FAERS Safety Report 13411960 (Version 1)
Quarter: 2017Q2

REPORT INFORMATION
  Report Type: Spontaneous
  Country: US (occurrence: US)
  Receive Date: 20170406
  Receipt Date: 20170406
  Transmission Date: 20170830
  Serious: Yes (Other)
  Sender: FDA-Public Use
  Company Number: US-ELI_LILLY_AND_COMPANY-US201607008660

PATIENT
  Age: 71 Year
  Sex: Female

DRUGS (2)
  1. CYMBALTA [Suspect]
     Active Substance: DULOXETINE HYDROCHLORIDE
     Dosage: 60 MG, EVERY 4 OR 5 DAYS
     Route: 048
  2. CYMBALTA [Suspect]
     Active Substance: DULOXETINE HYDROCHLORIDE
     Indication: PRODUCT USED FOR UNKNOWN INDICATION
     Dosage: 60 MG, QD
     Route: 048

REACTIONS (18)
  - Sensory disturbance [Unknown]
  - Agitation [Unknown]
  - Fatigue [Unknown]
  - Pollakiuria [Unknown]
  - Affect lability [Unknown]
  - Irritability [Unknown]
  - Anxiety [Unknown]
  - Headache [Unknown]
  - Lethargy [Unknown]
  - Loss of consciousness [Unknown]
  - Seizure [Unknown]
  - Dysphoria [Unknown]
  - Confusional state [Unknown]
  - Insomnia [Unknown]
  - Drug withdrawal syndrome [Unknown]
  - Vertigo [Unknown]
  - Dizziness [Unknown]
  - Diarrhoea [Unknown]

NARRATIVE: CASE EVENT DATE: 201510
